FAERS Safety Report 17178983 (Version 1)
Quarter: 2019Q4

REPORT INFORMATION
  Report Type: Spontaneous
  Country: DE (occurrence: DE)
  Receive Date: 20191219
  Receipt Date: 20191219
  Transmission Date: 20200122
  Serious: Yes (Other)
  Sender: FDA-Public Use
  Company Number: NVSC2019DE069401

PATIENT
  Sex: Female

DRUGS (2)
  1. SANDIMMUN OPTORAL [Suspect]
     Active Substance: CYCLOSPORINE
     Indication: GLOMERULONEPHRITIS
     Dosage: 175 MG, QD (100 MG ? 0 ? 75 MG)
     Route: 065
  2. SANDIMMUN OPTORAL [Suspect]
     Active Substance: CYCLOSPORINE
     Dosage: 100 MG, BIW (IN THE EVENING)
     Route: 065

REACTIONS (4)
  - Rheumatoid arthritis [Unknown]
  - Proteinuria [Unknown]
  - Renal function test abnormal [Unknown]
  - Therapeutic product effect decreased [Unknown]
